FAERS Safety Report 7720245-2 (Version None)
Quarter: 2011Q3

REPORT INFORMATION
  Report Type: 
  Country: None (occurrence: None)
  Receive Date: 20110831
  Receipt Date: 20110826
  Transmission Date: 20111222
  Serious: Yes (Other)
  Sender: FDA-Public Use
  Company Number: GB-PFIZER INC-2011199019

PATIENT
  Age: 17 Year
  Sex: Female

DRUGS (2)
  1. SERTRALINE HYDROCHLORIDE [Suspect]
     Indication: OBSESSIVE-COMPULSIVE DISORDER
     Dosage: 25 MG, UNK
  2. SERTRALINE HYDROCHLORIDE [Suspect]
     Indication: DEPRESSIVE SYMPTOM

REACTIONS (4)
  - ORAL PAIN [None]
  - SOMNOLENCE [None]
  - APHAGIA [None]
  - TOOTHACHE [None]
